FAERS Safety Report 24459137 (Version 1)
Quarter: 2024Q4

REPORT INFORMATION
  Report Type: Report from Study
  Country: JP (occurrence: JP)
  Receive Date: 20241018
  Receipt Date: 20241018
  Transmission Date: 20250114
  Serious: Yes (Other)
  Sender: REGENERON
  Company Number: JP-BAYER-2024A147249

PATIENT

DRUGS (1)
  1. EYLEA HD [Suspect]
     Active Substance: AFLIBERCEPT
     Indication: Diabetic retinal oedema
     Dosage: 8 MG, ONCE, SOLUTION FOR INJECTION, 114.3 MG/ML

REACTIONS (2)
  - Amaurosis [Unknown]
  - Intraocular pressure increased [Unknown]
